FAERS Safety Report 7553601-6 (Version None)
Quarter: 2011Q2

REPORT INFORMATION
  Report Type: 
  Country: None (occurrence: None)
  Receive Date: 20110614
  Receipt Date: 20110614
  Transmission Date: 20111010
  Serious: Yes (Other)
  Sender: FDA-Public Use
  Company Number: None

PATIENT
  Age: 58 Year
  Sex: Male
  Weight: 88.4514 kg

DRUGS (1)
  1. SIMVASTATIN [Suspect]
     Indication: BLOOD CHOLESTEROL INCREASED
     Dosage: 20MG 1 PER DAY PO
     Route: 048
     Dates: start: 20080415, end: 20100515

REACTIONS (3)
  - TENDON PAIN [None]
  - RASH ERYTHEMATOUS [None]
  - SWELLING [None]
